FAERS Safety Report 9585849 (Version 1)
Quarter: 2013Q4

REPORT INFORMATION
  Report Type: Spontaneous
  Country: US (occurrence: None)
  Receive Date: 20131001
  Receipt Date: 20131001
  Transmission Date: 20140711
  Serious: Yes (Other)
  Sender: FDA-Public Use
  Company Number: USW201309-000110

PATIENT
  Age: 57 Year
  Sex: Female

DRUGS (1)
  1. APOKYN [Suspect]
     Indication: PARKINSON^S DISEASE
     Dosage: 0.2 ML, UP TO 5 TIMES DAILY ( SITE: ABDOMEN), SUBCUTANEOUS
     Route: 058
     Dates: start: 20130912

REACTIONS (2)
  - Humerus fracture [None]
  - Fall [None]
